FAERS Safety Report 6471255-7 (Version None)
Quarter: 2009Q4

REPORT INFORMATION
  Report Type: 
  Country: None (occurrence: None)
  Receive Date: 20091203
  Receipt Date: 20080421
  Transmission Date: 20100525
  Serious: Yes (Hospitalization)
  Sender: FDA-Public Use
  Company Number: US-ELI_LILLY_AND_COMPANY-US200802003308

PATIENT
  Sex: Male
  Weight: 84.082 kg

DRUGS (8)
  1. BYETTA [Suspect]
     Indication: TYPE 2 DIABETES MELLITUS
     Dosage: 5 UG, 2/D
     Route: 058
     Dates: start: 20070131, end: 20070321
  2. BYETTA [Suspect]
     Dosage: 10 UG, 2/D
     Route: 058
     Dates: start: 20070322, end: 20070529
  3. BYETTA [Suspect]
     Dosage: 10 UG, 2/D
     Route: 058
     Dates: start: 20070101, end: 20070101
  4. CYMBALTA [Concomitant]
     Dosage: 60 MG, DAILY (1/D)
  5. METFORMIN HCL [Concomitant]
     Indication: TYPE 2 DIABETES MELLITUS
     Dosage: 1500 MG, DAILY (1/D)
  6. ACTOS [Concomitant]
     Indication: TYPE 2 DIABETES MELLITUS
     Dosage: 30 MG, DAILY (1/D)
  7. FOSINOPRIL SODIUM [Concomitant]
     Dosage: 20 MG, DAILY (1/D)
  8. LIPITOR [Concomitant]
     Indication: METABOLIC SYNDROME
     Dosage: UNK, UNKNOWN
     Dates: start: 20051001

REACTIONS (8)
  - ABDOMINAL PAIN [None]
  - BLOOD AMYLASE INCREASED [None]
  - DEHYDRATION [None]
  - DIARRHOEA [None]
  - IMPAIRED GASTRIC EMPTYING [None]
  - LIPASE INCREASED [None]
  - PANCREATIC DISORDER [None]
  - WEIGHT DECREASED [None]
